FAERS Safety Report 18222835 (Version 3)
Quarter: 2020Q4

REPORT INFORMATION
  Report Type: Spontaneous
  Country: NL (occurrence: NL)
  Receive Date: 20200902
  Receipt Date: 20201015
  Transmission Date: 20210113
  Serious: Yes (Other)
  Sender: FDA-Public Use
  Company Number: NVSC2020NL240087

PATIENT
  Sex: Male

DRUGS (1)
  1. HYRIMOZ [Suspect]
     Active Substance: ADALIMUMAB-ADAZ
     Indication: PSORIATIC ARTHROPATHY
     Dosage: UNK
     Route: 065
     Dates: start: 20200710

REACTIONS (5)
  - Venous occlusion [Unknown]
  - Optic nerve disorder [Unknown]
  - Ocular hypertension [Recovering/Resolving]
  - Blindness [Unknown]
  - Eye haemorrhage [Unknown]
